FAERS Safety Report 18942577 (Version 1)
Quarter: 2021Q1

REPORT INFORMATION
  Report Type: Spontaneous
  Country: US (occurrence: US)
  Receive Date: 20210225
  Receipt Date: 20210225
  Transmission Date: 20210420
  Serious: No
  Sender: FDA-Public Use
  Company Number: US-PERRIGO-20US009104

PATIENT
  Age: 81 Year
  Sex: Male
  Weight: 65.31 kg

DRUGS (5)
  1. BENICAR [Concomitant]
     Active Substance: OLMESARTAN MEDOXOMIL
     Indication: BLOOD PRESSURE INCREASED
     Dosage: UNK, UNK
     Route: 048
  2. NAPROXEN SODIUM. [Suspect]
     Active Substance: NAPROXEN SODIUM
     Dosage: 440 MG, BID
     Route: 048
     Dates: start: 202006
  3. PRAVASTATIN. [Concomitant]
     Active Substance: PRAVASTATIN
     Indication: BLOOD CHOLESTEROL INCREASED
     Dosage: UNK, UNK
     Route: 048
  4. VITAMIN D3 [Concomitant]
     Active Substance: CHOLECALCIFEROL
     Indication: VITAMIN D DECREASED
     Dosage: 1,000 IU, UNK
     Route: 048
  5. NAPROXEN SODIUM. [Suspect]
     Active Substance: NAPROXEN SODIUM
     Indication: ARTHRALGIA
     Dosage: 220 MG, EVERY 12 HOURS
     Route: 048
     Dates: start: 202006, end: 202006

REACTIONS (3)
  - Incorrect dose administered [Not Recovered/Not Resolved]
  - Drug ineffective [Unknown]
  - Increased tendency to bruise [Recovering/Resolving]

NARRATIVE: CASE EVENT DATE: 202006
